FAERS Safety Report 7349276-1 (Version None)
Quarter: 2011Q1

REPORT INFORMATION
  Report Type: 
  Country: None (occurrence: None)
  Receive Date: 20110225
  Receipt Date: 20110125
  Transmission Date: 20110831
  Serious: Yes (Hospitalization, Other)
  Sender: FDA-Public Use
  Company Number: 317117

PATIENT
  Age: 52 Year
  Sex: Female
  Weight: 67.1 kg

DRUGS (12)
  1. TRICOR /00090101/ (ADENOSINE) [Concomitant]
  2. FOLIC ACID [Concomitant]
  3. COQ10 (UBIDECARENONE) [Concomitant]
  4. LIPOIC ACID (THIOCTIC ACID) [Concomitant]
  5. EXFORGE (AMLODIPINE BESILATE, VALSARTAN) [Concomitant]
  6. SYNTHROID [Concomitant]
  7. FISH OIL (FISH OIL) [Concomitant]
  8. GLIMEPIRIDE [Concomitant]
  9. ASPIRIN [Concomitant]
  10. VICTOZA [Suspect]
     Indication: TYPE 2 DIABETES MELLITUS
     Dosage: 1.8 MG, QD, SUBCUTANEOUS
     Route: 058
     Dates: start: 20100601, end: 20100901
  11. METFORMIN (METFORMIN) [Concomitant]
  12. PRILOSEC [Concomitant]

REACTIONS (2)
  - WEIGHT DECREASED [None]
  - PANCREATITIS ACUTE [None]
